FAERS Safety Report 7764784-7 (Version None)
Quarter: 2011Q3

REPORT INFORMATION
  Report Type: 
  Country: None (occurrence: None)
  Receive Date: 20110921
  Receipt Date: 20110921
  Transmission Date: 20111222
  Serious: No
  Sender: FDA-Public Use
  Company Number: None

PATIENT
  Age: 28 Year
  Sex: Female
  Weight: 68.038 kg

DRUGS (2)
  1. YAZ [Suspect]
     Indication: MENSTRUAL DISORDER
     Dosage: 1 TABLET
     Route: 048
     Dates: start: 20090801, end: 20090815
  2. YAZ [Suspect]
     Indication: CONTRACEPTION
     Dosage: 1 TABLET
     Route: 048
     Dates: start: 20090801, end: 20090815

REACTIONS (9)
  - COLD SWEAT [None]
  - PYREXIA [None]
  - NAUSEA [None]
  - MALAISE [None]
  - VOMITING [None]
  - HYPERHIDROSIS [None]
  - FATIGUE [None]
  - DIZZINESS [None]
  - PAIN [None]
